FAERS Safety Report 7982326-8 (Version None)
Quarter: 2011Q4

REPORT INFORMATION
  Report Type: 
  Country: None (occurrence: None)
  Receive Date: 20111214
  Receipt Date: 20111214
  Transmission Date: 20120403
  Serious: Yes (Death)
  Sender: FDA-Public Use
  Company Number: None

PATIENT
  Age: 29 Year
  Sex: Female
  Weight: 58.8 kg

DRUGS (17)
  1. VITAMIN B10 [Concomitant]
  2. VITAMIN C: [Concomitant]
  3. SODIUM CHLORIDE [Concomitant]
  4. LACTATED RINGER'S [Concomitant]
  5. EFAVIRENZ [Suspect]
     Indication: HIV INFECTION
     Dosage: 600 MG QPM ORAL
     Route: 048
     Dates: start: 20111104, end: 20111109
  6. LOPERAMIDE (IMODIUM) [Concomitant]
  7. NYSTATIN [Concomitant]
  8. FLAGYL [Concomitant]
  9. POTASSIUM CHLORIDE (MIST POT CHLOR) [Concomitant]
  10. POTASSIUM CHLORIDE [Concomitant]
  11. PYRIDINE HYDROCHLORIDE: [Concomitant]
  12. DOXYCYCLINE [Concomitant]
  13. EMTRICITABINE/TENOFOVIR DISOPROXIL FUMARATE [Suspect]
     Indication: HIV INFECTION
     Dosage: 500 MG QD ORAL
     Route: 048
     Dates: start: 20111104, end: 20111109
  14. AMOXICILLIN AND CLAVULANATE (AUGMENTIN) [Concomitant]
  15. SODIUM CHLORIDE, POTASSIUM AND MAGNESIUM SOLUTION (MAINTELYTE) [Concomitant]
  16. ENOXAPARIN SODIUM (CLEXANE) [Concomitant]
  17. SULFAMETHOXAZOLE AND TRIMETHOPRIM [Concomitant]

REACTIONS (19)
  - HYPOKALAEMIA [None]
  - WEIGHT DECREASED [None]
  - PHARYNGITIS [None]
  - GAMMA-GLUTAMYLTRANSFERASE INCREASED [None]
  - ALANINE AMINOTRANSFERASE INCREASED [None]
  - DECREASED APPETITE [None]
  - CARBON DIOXIDE DECREASED [None]
  - METABOLIC ACIDOSIS [None]
  - BLOOD POTASSIUM DECREASED [None]
  - GASTROENTERITIS [None]
  - BLOOD SODIUM DECREASED [None]
  - ASPARTATE AMINOTRANSFERASE INCREASED [None]
  - CACHEXIA [None]
  - BLOOD ALBUMIN DECREASED [None]
  - DIARRHOEA [None]
  - THIRST [None]
  - FATIGUE [None]
  - GLOMERULAR FILTRATION RATE INCREASED [None]
  - BLOOD ALKALINE PHOSPHATASE INCREASED [None]
